FAERS Safety Report 11809577 (Version 5)
Quarter: 2020Q4

REPORT INFORMATION
  Report Type: Spontaneous
  Country: DE (occurrence: DE)
  Receive Date: 20151208
  Receipt Date: 20201120
  Transmission Date: 20210113
  Serious: Yes (Life-Threatening, Hospitalization, Other)
  Sender: FDA-Public Use
  Company Number: DE-ACCORD-036031

PATIENT
  Age: 26 Year
  Sex: Male
  Weight: 74 kg

DRUGS (7)
  1. MYCOPHENOLIC ACID. [Suspect]
     Active Substance: MYCOPHENOLIC ACID
     Indication: IMMUNOSUPPRESSION
     Dosage: 1440 MILLIGRAM DAILY
     Dates: end: 2013
  2. LEUKOVORIN [Concomitant]
     Active Substance: LEUCOVORIN SODIUM
     Indication: POST TRANSPLANT LYMPHOPROLIFERATIVE DISORDER
     Route: 042
  3. DEXAMETHASON GALEN [Suspect]
     Active Substance: DEXAMETHASONE
     Indication: BRAIN OEDEMA
     Route: 048
  4. METHYLPREDNISOLONE. [Concomitant]
     Active Substance: METHYLPREDNISOLONE
     Indication: IMMUNOSUPPRESSION
  5. METHOTREXATE. [Suspect]
     Active Substance: METHOTREXATE
     Indication: POST TRANSPLANT LYMPHOPROLIFERATIVE DISORDER
     Dosage: DOSE:4 GRAM(S)/SQUARE METER
     Route: 042
     Dates: start: 201312, end: 2014
  6. RITUXIMAB. [Suspect]
     Active Substance: RITUXIMAB
     Indication: POST TRANSPLANT LYMPHOPROLIFERATIVE DISORDER
     Dosage: 375 MG/QM THEN INCRESAED TO 500/QM AND 500 MG/M2
     Route: 042
  7. CYTARABINE/CYTARABINE HYDROCHLORIDE/CYTARABINE OCFOSFATE [Suspect]
     Active Substance: CYTARABINE
     Indication: POST TRANSPLANT LYMPHOPROLIFERATIVE DISORDER
     Dosage: 3 G/QM
     Route: 042
     Dates: start: 2013, end: 2013

REACTIONS (8)
  - Epstein-Barr virus associated lymphoma [Not Recovered/Not Resolved]
  - Sepsis [Recovered/Resolved]
  - Off label use [Unknown]
  - Renal transplant failure [Unknown]
  - Leukopenia [Unknown]
  - Pneumonia escherichia [Recovered/Resolved]
  - Cytomegalovirus infection [Unknown]
  - Pneumocystis jirovecii pneumonia [Unknown]

NARRATIVE: CASE EVENT DATE: 2013
